FAERS Safety Report 20516564 (Version 1)
Quarter: 2022Q1

REPORT INFORMATION
  Report Type: Spontaneous
  Country: CA (occurrence: CA)
  Receive Date: 20220225
  Receipt Date: 20220225
  Transmission Date: 20220423
  Serious: Yes (Hospitalization, Other)
  Sender: FDA-Public Use
  Company Number: CA-TEVA-2022-CA-2010276

PATIENT
  Age: 71 Year
  Sex: Male

DRUGS (32)
  1. MESALAMINE [Suspect]
     Active Substance: MESALAMINE
     Indication: Product used for unknown indication
     Route: 065
  2. ONDANSETRON [Suspect]
     Active Substance: ONDANSETRON
     Indication: Product use issue
     Route: 065
  3. PANTOPRAZOLE MAGNESIUM [Suspect]
     Active Substance: PANTOPRAZOLE MAGNESIUM
     Indication: Product used for unknown indication
     Route: 065
  4. PANTOPRAZOLE MAGNESIUM [Suspect]
     Active Substance: PANTOPRAZOLE MAGNESIUM
     Indication: Product use issue
  5. ALOGLIPTIN BENZOATE\METFORMIN HYDROCHLORIDE [Suspect]
     Active Substance: ALOGLIPTIN BENZOATE\METFORMIN HYDROCHLORIDE
     Indication: Product used for unknown indication
  6. ALOGLIPTIN BENZOATE [Suspect]
     Active Substance: ALOGLIPTIN BENZOATE
     Indication: Product used for unknown indication
  7. FIBRINOGEN [Suspect]
     Active Substance: FIBRINOGEN HUMAN
     Indication: Product used for unknown indication
     Route: 065
  8. MESALAMINE [Suspect]
     Active Substance: MESALAMINE
     Indication: Product used for unknown indication
  9. OMNARIS [Suspect]
     Active Substance: CICLESONIDE
     Indication: Product used for unknown indication
     Route: 055
  10. OMNARIS [Suspect]
     Active Substance: CICLESONIDE
     Dosage: 300 MILLIGRAM DAILY;
  11. THROMBIN [Suspect]
     Active Substance: THROMBIN
     Indication: Product used for unknown indication
     Route: 065
  12. ULORIC [Suspect]
     Active Substance: FEBUXOSTAT
     Indication: Product used for unknown indication
  13. VEDOLIZUMAB [Suspect]
     Active Substance: VEDOLIZUMAB
     Indication: Colitis ulcerative
     Route: 042
  14. VEDOLIZUMAB [Suspect]
     Active Substance: VEDOLIZUMAB
     Route: 042
  15. ASPIRIN [Concomitant]
     Active Substance: ASPIRIN
     Route: 065
  16. AMLODIPINE [Concomitant]
     Active Substance: AMLODIPINE BESYLATE
     Route: 065
  17. ATORVASTATIN [Concomitant]
     Active Substance: ATORVASTATIN
     Route: 065
  18. AZATHIOPRINE [Concomitant]
     Active Substance: AZATHIOPRINE
  19. CIMZIA [Concomitant]
     Active Substance: CERTOLIZUMAB PEGOL
     Route: 058
  20. INFLECTRA [Concomitant]
     Active Substance: INFLIXIMAB-DYYB
  21. METHOTREXATE [Concomitant]
     Active Substance: METHOTREXATE
     Route: 037
  22. MORPHINE [Concomitant]
     Active Substance: MORPHINE
  23. PENTASA [Concomitant]
     Active Substance: MESALAMINE
  24. PREDNISONE [Concomitant]
     Active Substance: PREDNISONE
  25. PREGABALIN [Concomitant]
     Active Substance: PREGABALIN
  26. PURINETHOL [Concomitant]
     Active Substance: MERCAPTOPURINE
  27. REMICADE [Concomitant]
     Active Substance: INFLIXIMAB
  28. INFLIXIMAB [Concomitant]
     Active Substance: INFLIXIMAB
  29. SIMPONI [Concomitant]
     Active Substance: GOLIMUMAB
  30. STELARA [Concomitant]
     Active Substance: USTEKINUMAB
  31. TYSABRI [Concomitant]
     Active Substance: NATALIZUMAB
  32. XELJANZ [Concomitant]
     Active Substance: TOFACITINIB CITRATE

REACTIONS (5)
  - Appetite disorder [Not Recovered/Not Resolved]
  - Diarrhoea [Not Recovered/Not Resolved]
  - Tonsil cancer [Not Recovered/Not Resolved]
  - SARS-CoV-2 test positive [Not Recovered/Not Resolved]
  - Product use issue [Not Recovered/Not Resolved]
